FAERS Safety Report 23600363 (Version 1)
Quarter: 2024Q1

REPORT INFORMATION
  Report Type: Spontaneous
  Country: RU (occurrence: RU)
  Receive Date: 20240306
  Receipt Date: 20240306
  Transmission Date: 20240410
  Serious: Yes (Hospitalization)
  Sender: FDA-Public Use
  Company Number: RU-SKF-000074

PATIENT
  Age: 31 Year
  Sex: Male

DRUGS (4)
  1. PREGABALIN [Suspect]
     Active Substance: PREGABALIN
     Indication: Product used for unknown indication
     Route: 065
  2. ALCOHOL [Suspect]
     Active Substance: ALCOHOL
     Indication: Product used for unknown indication
     Route: 065
  3. 4-AMINO-3-PHENYLBUTYRIC ACID [Suspect]
     Active Substance: 4-AMINO-3-PHENYLBUTYRIC ACID
     Indication: Product used for unknown indication
     Route: 065
  4. PHENAZEPAM [Suspect]
     Active Substance: PHENAZEPAM
     Indication: Product used for unknown indication
     Route: 065

REACTIONS (4)
  - Toxicity to various agents [Unknown]
  - Poisoning [Unknown]
  - Sopor [Unknown]
  - Loss of consciousness [Unknown]
